FAERS Safety Report 6224285-4 (Version None)
Quarter: 2009Q2

REPORT INFORMATION
  Report Type: 
  Country: None (occurrence: None)
  Receive Date: 20090612
  Receipt Date: 20090313
  Transmission Date: 20091009
  Serious: No
  Sender: FDA-Public Use
  Company Number: US-ABBOTT-09P-163-0562687-00

PATIENT
  Sex: Female
  Weight: 83.082 kg

DRUGS (3)
  1. HUMIRA [Suspect]
     Indication: CROHN'S DISEASE
     Dosage: 80 WK 1 40WK 2 THEN QOW
     Dates: start: 20090305
  2. HUMIRA [Suspect]
     Indication: PSORIATIC ARTHROPATHY
  3. BENADRYL [Concomitant]
     Indication: DRUG USE FOR UNKNOWN INDICATION

REACTIONS (2)
  - INJECTION SITE PRURITUS [None]
  - SUNBURN [None]
